FAERS Safety Report 8972502 (Version 2)
Quarter: 2014Q1

REPORT INFORMATION
  Report Type: Report from Study
  Country: FR (occurrence: FR)
  Receive Date: 20121218
  Receipt Date: 20140127
  Transmission Date: 20141002
  Serious: Yes (Hospitalization)
  Sender: FDA-Public Use
  Company Number: FR-ROCHE-1170927

PATIENT
  Age: 80 Year
  Sex: Male

DRUGS (5)
  1. RITUXIMAB [Suspect]
     Indication: CHRONIC LYMPHOCYTIC LEUKAEMIA
     Dosage: INDUCTION THERAPY AS PER PROTOCOL.
     Route: 041
     Dates: start: 20110111
  2. RITUXIMAB [Suspect]
     Dosage: START DATE ESTIMATED AS PER PROTOCOL. INDUCTION THERAPY AS PER PROTOCOL: 500 MG/M2 ON DAY 14, CYCLE
     Route: 041
     Dates: start: 20110124
  3. RITUXIMAB [Suspect]
     Dosage: MAINTENANCE ARM. FREQUENCY AS PER PROTOCOL. LAST DOSE RECEIVED PRIOR TO THE EVENT WAS ON 18/NOV/2011
     Route: 041
     Dates: start: 20111118, end: 20111118
  4. CYCLOPHOSPHAMIDE [Suspect]
     Indication: CHRONIC LYMPHOCYTIC LEUKAEMIA
     Dosage: ROUTE, DOSE AND FREQUENCY AS PER PROTOCOL.
     Route: 048
     Dates: start: 20110112
  5. FLUDARABINE [Suspect]
     Indication: CHRONIC LYMPHOCYTIC LEUKAEMIA
     Dosage: ROUTE, DOSE AND FREQUENCY AS PER PROTOCOL.
     Route: 048
     Dates: start: 20110112

REACTIONS (3)
  - Clostridium difficile infection [Recovered/Resolved]
  - Hypogammaglobulinaemia [Recovered/Resolved]
  - Malnutrition [Recovered/Resolved]
